FAERS Safety Report 15011363 (Version 3)
Quarter: 2018Q3

REPORT INFORMATION
  Report Type: Spontaneous
  Country: US (occurrence: US)
  Receive Date: 20180614
  Receipt Date: 20180720
  Transmission Date: 20181010
  Serious: No
  Sender: FDA-Public Use
  Company Number: US-PFIZER INC-2018239615

PATIENT
  Age: 69 Year
  Sex: Female

DRUGS (2)
  1. CELECOXIB. [Suspect]
     Active Substance: CELECOXIB
     Dosage: UNK
  2. CELEBREX [Suspect]
     Active Substance: CELECOXIB
     Indication: OSTEOARTHRITIS
     Dosage: 200 MG, UNK
     Route: 048

REACTIONS (2)
  - Eye swelling [Unknown]
  - Drug hypersensitivity [Unknown]
